FAERS Safety Report 7927094-0 (Version None)
Quarter: 2011Q4

REPORT INFORMATION
  Report Type: 
  Country: None (occurrence: None)
  Receive Date: 20111116
  Receipt Date: 20111031
  Transmission Date: 20120403
  Serious: Yes (Death)
  Sender: FDA-Public Use
  Company Number: 1000025461

PATIENT
  Age: 92 Year
  Sex: Male

DRUGS (8)
  1. KANDESARTAN (CANDESARTAN CILEXETIL) (TABLETS) (CANDESARTAN CILEXETIL) [Concomitant]
  2. ISOSORBIDE (ISOSORBIDE) (TABLETS) (ISOSORBIDE) [Concomitant]
  3. FUROSEMIDE [Concomitant]
  4. CARVEDILOLE (CARVEDILOL) (TABLETS) (CARVEDILOL) [Concomitant]
  5. TRIMETAZIDINE (TRIMETAZIDINE) (TABLETS) (TRIMETAZIDINE) [Concomitant]
  6. CLOPIDOGREL (CLOPIDOGREL) (TABLETS) (CLOPIDOGREL) [Concomitant]
  7. TAMSULOSIN (TAMSULOSIN) (TABLETS) (TAMSULOSIN) [Concomitant]
  8. MEMANTINE HYDROCHLORIDE [Suspect]
     Dosage: ORAL
     Route: 048
     Dates: start: 20110801, end: 20110801

REACTIONS (2)
  - RENAL FAILURE [None]
  - CARDIAC FAILURE [None]
